FAERS Safety Report 4571169-3 (Version None)
Quarter: 2005Q1

REPORT INFORMATION
  Report Type: 
  Country: None (occurrence: None)
  Receive Date: 20050202
  Receipt Date: 20050117
  Transmission Date: 20050727
  Serious: Yes (Other)
  Sender: FDA-Public Use
  Company Number: GBS050116419

PATIENT
  Age: 10 Year
  Sex: Female
  Weight: 26 kg

DRUGS (3)
  1. STRATTERA [Suspect]
     Indication: ATTENTION DEFICIT/HYPERACTIVITY DISORDER
     Dosage: 10 MG
     Dates: start: 20050104, end: 20050104
  2. CONCERTA [Concomitant]
  3. CLONIDINE [Concomitant]

REACTIONS (3)
  - CONTUSION [None]
  - HEADACHE [None]
  - VOMITING [None]
